FAERS Safety Report 14779921 (Version 1)
Quarter: 2018Q2

REPORT INFORMATION
  Report Type: Spontaneous
  Country: RU (occurrence: RU)
  Receive Date: 20180419
  Receipt Date: 20180419
  Transmission Date: 20180711
  Serious: Yes (Other)
  Sender: FDA-Public Use
  Company Number: RU-TEVA-2018-RU-883174

PATIENT
  Age: 45 Year
  Sex: Female

DRUGS (1)
  1. VALZ [Suspect]
     Active Substance: VALSARTAN
     Route: 048

REACTIONS (3)
  - Drug ineffective [Unknown]
  - Hypertensive crisis [Not Recovered/Not Resolved]
  - Blood pressure increased [Not Recovered/Not Resolved]
